FAERS Safety Report 21480663 (Version 5)
Quarter: 2022Q4

REPORT INFORMATION
  Report Type: Report from Study
  Country: CN (occurrence: CN)
  Receive Date: 20221019
  Receipt Date: 20221116
  Transmission Date: 20230113
  Serious: Yes (Life-Threatening, Hospitalization, Other)
  Sender: FDA-Public Use
  Company Number: CN-BRISTOL-MYERS SQUIBB COMPANY-2022-123189

PATIENT
  Age: 73 Year
  Sex: Female
  Weight: 51.6 kg

DRUGS (10)
  1. AZACITIDINE [Suspect]
     Active Substance: AZACITIDINE
     Indication: Acute myeloid leukaemia
     Dosage: DAY 1-7 FOR ALL CYCLES. LAST DATE ADMINISTERED WAS ON 05-OCT-2022.
     Route: 058
     Dates: start: 20220830
  2. VENETOCLAX [Suspect]
     Active Substance: VENETOCLAX
     Indication: Acute myeloid leukaemia
     Dosage: CYCLE DAY 1-28
     Route: 048
     Dates: start: 20221029
  3. VENETOCLAX [Suspect]
     Active Substance: VENETOCLAX
     Dosage: CYCLE DAYS 1-28
     Route: 048
     Dates: start: 20220920, end: 20220928
  4. VENETOCLAX [Suspect]
     Active Substance: VENETOCLAX
     Dosage: CYCLE DAYS 1-28
     Route: 048
     Dates: start: 20220830, end: 20220830
  5. VENETOCLAX [Suspect]
     Active Substance: VENETOCLAX
     Dosage: CYCLE DAYS 1-28
     Route: 048
     Dates: start: 20220831, end: 20220901
  6. VENETOCLAX [Suspect]
     Active Substance: VENETOCLAX
     Dosage: CYCLE DAYS 1-28
     Route: 048
     Dates: start: 20220929, end: 20221010
  7. VENETOCLAX [Suspect]
     Active Substance: VENETOCLAX
     Dosage: CYCLE DAY 1-28
     Route: 048
     Dates: start: 20220902, end: 20220919
  8. POTASSIUM CHLORIDE BUFUS [Concomitant]
     Indication: Product used for unknown indication
     Route: 065
     Dates: start: 20220830
  9. CETYLPYRIDINIUM [CETYLPYRIDINIUM CHLORIDE] [Concomitant]
     Indication: Product used for unknown indication
     Route: 065
     Dates: start: 20220815
  10. IMIPENEM AND CILASTATIN [Concomitant]
     Active Substance: CILASTATIN SODIUM\IMIPENEM
     Indication: Product used for unknown indication
     Dosage: 1 BOTTLE
     Route: 065
     Dates: start: 20220815

REACTIONS (3)
  - Septic shock [Recovered/Resolved]
  - Myelosuppression [Recovered/Resolved]
  - Acute kidney injury [Recovering/Resolving]

NARRATIVE: CASE EVENT DATE: 20221010
